FAERS Safety Report 6137287-3 (Version None)
Quarter: 2009Q1

REPORT INFORMATION
  Report Type: 
  Country: None (occurrence: None)
  Receive Date: 20090326
  Receipt Date: 20090326
  Transmission Date: 20090719
  Serious: Yes (Other)
  Sender: FDA-Public Use
  Company Number: None

PATIENT
  Sex: Female
  Weight: 57.3347 kg

DRUGS (2)
  1. SINEMET CR [Suspect]
     Indication: PARKINSON'S DISEASE
     Dosage: QID ORAL
     Route: 048
     Dates: start: 20060101
  2. SINEMET [Suspect]
     Dosage: 2-5/D ORAL
     Route: 048
     Dates: start: 20060101

REACTIONS (4)
  - DIZZINESS [None]
  - DRUG INTOLERANCE [None]
  - NAUSEA [None]
  - PRODUCT QUALITY ISSUE [None]
